FAERS Safety Report 13155892 (Version 1)
Quarter: 2017Q1

REPORT INFORMATION
  Report Type: Spontaneous
  Country: US (occurrence: US)
  Receive Date: 20170126
  Receipt Date: 20170126
  Transmission Date: 20170428
  Serious: No
  Sender: FDA-Public Use
  Company Number: US-ROCHE-GNE297835

PATIENT
  Age: 61 Year
  Sex: Female
  Weight: 95.6 kg

DRUGS (4)
  1. CATHFLO ACTIVASE [Suspect]
     Active Substance: ALTEPLASE
     Indication: DEVICE OCCLUSION
     Dosage: UNK
     Route: 065
     Dates: start: 20100205
  2. WARFARIN [Concomitant]
     Active Substance: WARFARIN
     Indication: PRODUCT USED FOR UNKNOWN INDICATION
  3. DIABETIC MEDICATION NOS [Concomitant]
     Indication: DIABETES MELLITUS
  4. HEART MEDICATION [Concomitant]
     Active Substance: UNSPECIFIED INGREDIENT
     Indication: CARDIAC FAILURE CONGESTIVE

REACTIONS (1)
  - Drug ineffective [Unknown]

NARRATIVE: CASE EVENT DATE: 20100205
